FAERS Safety Report 8887830 (Version 1)
Quarter: 2012Q4

REPORT INFORMATION
  Report Type: 
  Country: DE (occurrence: DE)
  Receive Date: 20121106
  Receipt Date: 20121106
  Transmission Date: 20130627
  Serious: Yes (Life-Threatening, Hospitalization, Disabling, Other)
  Sender: FDA-Public Use
  Company Number: DE-BAYER-2012-091866

PATIENT
  Age: 76 Year
  Sex: Male

DRUGS (7)
  1. XARELTO [Suspect]
     Indication: BYPASS SURGERY
     Dosage: 20 mg, QD
  2. XARELTO [Suspect]
     Indication: ATRIAL FIBRILLATION
  3. XARELTO [Suspect]
     Indication: CEREBROVASCULAR ACCIDENT PROPHYLAXIS
  4. ACETYLSALICYLIC ACID({=100 MG) [Suspect]
  5. CONCOR [Concomitant]
     Indication: CORONARY ARTERY DISEASE
     Dosage: Daily dose 5 mg
  6. AMIODARON [Concomitant]
     Indication: ATRIAL FIBRILLATION
     Dosage: UNK,200
  7. INSPRA [Concomitant]
     Dosage: Daily dose 25 mg

REACTIONS (15)
  - Accident [None]
  - Subdural haematoma [None]
  - Altered state of consciousness [None]
  - Headache [None]
  - Nausea [None]
  - Vomiting [None]
  - Gait disturbance [None]
  - Hemiparesis [None]
  - Respiratory failure [None]
  - Pupils unequal [None]
  - Pupillary light reflex tests abnormal [None]
  - Epilepsy [None]
  - Melaena [None]
  - Pneumonia [None]
  - Intracranial pressure increased [None]
